FAERS Safety Report 4780907-6 (Version None)
Quarter: 2005Q3

REPORT INFORMATION
  Report Type: 
  Country: None (occurrence: None)
  Receive Date: 20050927
  Receipt Date: 20050927
  Transmission Date: 20060218
  Serious: Yes (Life-Threatening, Hospitalization)
  Sender: FDA-Public Use
  Company Number: None

PATIENT
  Age: 19 Year
  Sex: Female

DRUGS (1)
  1. NICORETTE [Suspect]
     Indication: EX-SMOKER
     Dosage: 2 MG
     Dates: start: 20040711, end: 20040810

REACTIONS (8)
  - DRUG EXPOSURE DURING PREGNANCY [None]
  - FOETAL ARRHYTHMIA [None]
  - FOETAL GROWTH RETARDATION [None]
  - FOETAL HEART RATE ABNORMAL [None]
  - OLIGOHYDRAMNIOS [None]
  - PRE-ECLAMPSIA [None]
  - PREMATURE LABOUR [None]
  - SMALL FOR DATES BABY [None]
